FAERS Safety Report 21405824 (Version 1)
Quarter: 2022Q4

REPORT INFORMATION
  Report Type: Spontaneous
  Country: RS (occurrence: None)
  Receive Date: 20221004
  Receipt Date: 20221004
  Transmission Date: 20230112
  Serious: Yes (Death, Hospitalization)
  Sender: FDA-Public Use
  Company Number: RS-ROCHE-3191316

PATIENT
  Age: 75 Year
  Sex: Male

DRUGS (2)
  1. MABTHERA [Suspect]
     Active Substance: RITUXIMAB
     Indication: Rheumatoid arthritis
     Dosage: THE PATIENT RECEIVED THE SECOND INFUSION OF CYCLE 10 ON 27/MAY/2021
     Route: 041
     Dates: start: 201512
  2. ETANERCEPT [Concomitant]
     Active Substance: ETANERCEPT

REACTIONS (2)
  - Acute respiratory failure [Fatal]
  - COVID-19 [Fatal]

NARRATIVE: CASE EVENT DATE: 20210801
